FAERS Safety Report 13375924 (Version 3)
Quarter: 2017Q3

REPORT INFORMATION
  Report Type: Report from Study
  Country: US (occurrence: US)
  Receive Date: 20170328
  Receipt Date: 20170714
  Transmission Date: 20171127
  Serious: Yes (Other)
  Sender: FDA-Public Use
  Company Number: US-ACTELION-A-US2016-145539

PATIENT
  Age: 46 Year
  Sex: Female
  Weight: 53.97 kg

DRUGS (7)
  1. TACROLIMUS. [Suspect]
     Active Substance: TACROLIMUS
     Indication: PRODUCT USED FOR UNKNOWN INDICATION
     Route: 065
  2. REMODULIN [Suspect]
     Active Substance: TREPROSTINIL
     Dosage: 140 NG/KG, PER MIN
     Route: 042
  3. SILDENAFIL. [Concomitant]
     Active Substance: SILDENAFIL
  4. REMODULIN [Suspect]
     Active Substance: TREPROSTINIL
     Dosage: 146 NG/KG, PER MIN
     Route: 042
  5. MIDODRINE [Concomitant]
     Active Substance: MIDODRINE
  6. OPSUMIT [Suspect]
     Active Substance: MACITENTAN
     Indication: PULMONARY ARTERIAL HYPERTENSION
     Dosage: 10 MG, QD
     Route: 048
     Dates: start: 20150310
  7. REMODULIN [Suspect]
     Active Substance: TREPROSTINIL
     Indication: PULMONARY ARTERIAL HYPERTENSION
     Dosage: 148 NG/KG, PER MIN
     Route: 042

REACTIONS (20)
  - Myalgia [Unknown]
  - Cardiac discomfort [Unknown]
  - Catheter site erythema [Unknown]
  - Dizziness [Unknown]
  - Hypersomnia [Unknown]
  - Somnolence [Unknown]
  - Nervousness [Unknown]
  - Migraine [Unknown]
  - Musculoskeletal pain [Unknown]
  - Therapy non-responder [Unknown]
  - Oedema [Unknown]
  - Feeling abnormal [Unknown]
  - Abdominal pain upper [Unknown]
  - General physical condition abnormal [Unknown]
  - Hypotension [Not Recovered/Not Resolved]
  - Vomiting [Unknown]
  - Weight decreased [Unknown]
  - Fatigue [Unknown]
  - Pulmonary arterial pressure increased [Unknown]
  - Condition aggravated [Unknown]

NARRATIVE: CASE EVENT DATE: 20170111
